FAERS Safety Report 23493489 (Version 2)
Quarter: 2024Q1

REPORT INFORMATION
  Report Type: Spontaneous
  Country: AU (occurrence: AU)
  Receive Date: 20240207
  Receipt Date: 20240325
  Transmission Date: 20240409
  Serious: Yes (Hospitalization, Other)
  Sender: FDA-Public Use
  Company Number: AU-MYLANLABS-2024M1011716

PATIENT
  Sex: Female

DRUGS (14)
  1. CLOZARIL [Suspect]
     Active Substance: CLOZAPINE
     Indication: Schizophrenia
     Dosage: 300 MILLIGRAM
     Route: 048
     Dates: start: 20220316
  2. CLOZARIL [Suspect]
     Active Substance: CLOZAPINE
     Dosage: 400 MILLIGRAM
     Route: 048
     Dates: start: 20220316
  3. CLOZARIL [Suspect]
     Active Substance: CLOZAPINE
     Dosage: 2 DOSAGE FORM, QD (2 TABLETS DAILY)
     Route: 065
     Dates: start: 20220420
  4. ARIPIPRAZOLE [Concomitant]
     Active Substance: ARIPIPRAZOLE
     Dosage: 1 DOSAGE FORM, QD (ONE AT NIGHT, EVERY DAY)
     Route: 065
     Dates: start: 20221230
  5. Betavit [Concomitant]
     Dosage: 1 DOSAGE FORM, TID (1 TABLET 3 TIMES A DAY, EVERY DAY)
     Route: 065
     Dates: start: 20231222
  6. Coloxyl [Concomitant]
     Dosage: 2 DOSAGE FORM, QD (2 TABLETS IN THE MORNING, EVERY DAY)
     Route: 065
     Dates: start: 20231222
  7. Elaxine sr [Concomitant]
     Dosage: 2 DOSAGE FORM, QD (2 CAPSULES IN THE MORNING DAILY)
     Route: 065
     Dates: start: 20220423
  8. FERRO GRAD C [Concomitant]
     Dosage: 1 DOSAGE FORM, BID (1 TABLET TWICE A DAY, EVERY DAY)
     Route: 065
     Dates: start: 20231222
  9. MIRTAZAPINE AN [Concomitant]
     Dosage: 1 DOSAGE FORM, QD (1 TABLET DAILY)
     Route: 065
     Dates: start: 20230719
  10. PRAZOSIN [Concomitant]
     Active Substance: PRAZOSIN
     Dosage: 1 DOSAGE FORM, QD (1 TABLET AT NIGHT)
     Route: 065
     Dates: start: 20230719
  11. VALPROATE [Concomitant]
     Active Substance: VALPROIC ACID
     Dosage: 2 DOSAGE FORM, BID (2 TABLETS TWICE A DAY)
     Route: 065
     Dates: start: 20221230
  12. Vitaminorum [Concomitant]
     Dosage: 1 DOSAGE FORM, QD (1 TABLET DAILY IN THE MORNING)
     Route: 065
     Dates: start: 20231222
  13. DIAZEPAM [Concomitant]
     Active Substance: DIAZEPAM
     Dosage: UNK, QD (1 TO 2 EVERY 4 HOURS WHEN REQUIRED)
     Route: 065
     Dates: start: 20231222
  14. QUETIAPINE AN [Concomitant]
     Dosage: UNK, QD (HALF TO 1 EVERY FOUR HOURS WHEN REQUIRED)
     Route: 065
     Dates: start: 20231222

REACTIONS (4)
  - Appendicectomy [Unknown]
  - Suicide attempt [Unknown]
  - Mental disorder [Unknown]
  - Intestinal perforation [Unknown]
